FAERS Safety Report 6839457-5 (Version None)
Quarter: 2010Q3

REPORT INFORMATION
  Report Type: 
  Country: None (occurrence: None)
  Receive Date: 20100714
  Receipt Date: 20090604
  Transmission Date: 20110219
  Serious: No
  Sender: FDA-Public Use
  Company Number: A0790171A

PATIENT
  Age: 39 Month
  Sex: Male

DRUGS (2)
  1. FLOVENT [Suspect]
     Indication: PRODUCT USED FOR UNKNOWN INDICATION
     Route: 055
     Dates: start: 20090101
  2. UNSPECIFIED TREATMENT [Concomitant]

REACTIONS (2)
  - DIARRHOEA [None]
  - OFF LABEL USE [None]
